FAERS Safety Report 14965099 (Version 2)
Quarter: 2018Q2

REPORT INFORMATION
  Report Type: Spontaneous
  Country: US (occurrence: US)
  Receive Date: 20180601
  Receipt Date: 20180608
  Transmission Date: 20180711
  Serious: Yes (Hospitalization)
  Sender: FDA-Public Use
  Company Number: US-PRINSTON PHARMACEUTICAL INC.-2018PRN00270

PATIENT
  Age: 82 Year
  Sex: Male
  Weight: 66.89 kg

DRUGS (5)
  1. FUROSEMIDE. [Suspect]
     Active Substance: FUROSEMIDE
     Indication: FLUID RETENTION
     Dosage: 20 MG, 1X/DAY
     Route: 048
     Dates: start: 201802, end: 20180501
  2. FUROSEMIDE. [Suspect]
     Active Substance: FUROSEMIDE
     Indication: HYPERTENSION
  3. ASPIRIN. [Concomitant]
     Active Substance: ASPIRIN
  4. UNSPECIFIED MULTIVITAMIN [Concomitant]
  5. VITAMIN D3 [Concomitant]
     Active Substance: CHOLECALCIFEROL

REACTIONS (13)
  - Wound secretion [Recovered/Resolved]
  - Peripheral swelling [Recovering/Resolving]
  - Erythema [Not Recovered/Not Resolved]
  - Fall [Not Recovered/Not Resolved]
  - Sensory disturbance [Unknown]
  - Skin disorder [Recovering/Resolving]
  - Laceration [Recovering/Resolving]
  - Skin exfoliation [Not Recovered/Not Resolved]
  - Gait disturbance [Recovering/Resolving]
  - Pain [Not Recovered/Not Resolved]
  - Weight bearing difficulty [Not Recovered/Not Resolved]
  - Skin weeping [Recovered/Resolved]
  - Skin infection [Recovering/Resolving]

NARRATIVE: CASE EVENT DATE: 2018
